FAERS Safety Report 4410109-4 (Version None)
Quarter: 2004Q3

REPORT INFORMATION
  Report Type: 
  Country: None (occurrence: None)
  Receive Date: 20040728
  Receipt Date: 20040622
  Transmission Date: 20050211
  Serious: Yes (Hospitalization, Congenital Anomaly)
  Sender: FDA-Public Use
  Company Number: PHRM2004FR02200

PATIENT
  Age: 14 Month
  Sex: Male
  Weight: 7 kg

DRUGS (1)
  1. COTAREG [Suspect]
     Route: 064
     Dates: end: 20030315

REACTIONS (9)
  - ATELECTASIS NEONATAL [None]
  - CHEST X-RAY ABNORMAL [None]
  - CONGENITAL CYSTIC KIDNEY DISEASE [None]
  - CREATININE RENAL CLEARANCE DECREASED [None]
  - DRUG EXPOSURE DURING PREGNANCY [None]
  - PULMONARY HYPOPLASIA [None]
  - RENAL FAILURE CHRONIC [None]
  - SKULL MALFORMATION [None]
  - ULTRASOUND KIDNEY ABNORMAL [None]
